FAERS Safety Report 5225430-X (Version None)
Quarter: 2007Q1

REPORT INFORMATION
  Report Type: 
  Country: None (occurrence: None)
  Receive Date: 20061201
  Receipt Date: 20060822
  Transmission Date: 20070707
  Serious: No
  Sender: FDA-Public Use
  Company Number: US200608004716

PATIENT
  Age: 41 Year
  Sex: Female

DRUGS (3)
  1. CYMBALTA [Suspect]
     Indication: MIGRAINE
     Dosage: 30 MG, DAILY (1/D)
     Dates: start: 20060529, end: 20060820
  2. LORAZEPAM [Concomitant]
  3. FIORICET [Concomitant]

REACTIONS (10)
  - ANOREXIA [None]
  - ARTHRALGIA [None]
  - CANDIDIASIS [None]
  - CONFUSIONAL STATE [None]
  - DYSPHAGIA [None]
  - DYSPHONIA [None]
  - EYE SWELLING [None]
  - FATIGUE [None]
  - FLUSHING [None]
  - RESPIRATORY TRACT INFECTION [None]
